FAERS Safety Report 22346434 (Version 1)
Quarter: 2023Q2

REPORT INFORMATION
  Report Type: Spontaneous
  Country: CH (occurrence: CH)
  Receive Date: 20230519
  Receipt Date: 20230519
  Transmission Date: 20230722
  Serious: Yes (Other)
  Sender: FDA-Public Use
  Company Number: None

PATIENT
  Age: 16 Month
  Sex: Male

DRUGS (3)
  1. OLUMIANT [Suspect]
     Active Substance: BARICITINIB
     Indication: Aicardi-Goutieres syndrome
     Dosage: 8 MG, DAILY
     Route: 048
     Dates: start: 202206
  2. PREDNISOLONE [Suspect]
     Active Substance: PREDNISOLONE
     Indication: Aicardi-Goutieres syndrome
     Dosage: 20 MG, UNKNOWN
     Route: 065
     Dates: start: 202206, end: 202303
  3. PREDNISOLONE [Suspect]
     Active Substance: PREDNISOLONE
     Dosage: 1 MG, DAILY
     Route: 065
     Dates: start: 202303

REACTIONS (2)
  - Growth retardation [Not Recovered/Not Resolved]
  - Off label use [Unknown]

NARRATIVE: CASE EVENT DATE: 20220901
